FAERS Safety Report 6540709-7 (Version None)
Quarter: 2010Q1

REPORT INFORMATION
  Report Type: 
  Country: None (occurrence: None)
  Receive Date: 20100118
  Receipt Date: 20100115
  Transmission Date: 20100710
  Serious: Yes (Hospitalization)
  Sender: FDA-Public Use
  Company Number: US-JNJFOC-20100100356

PATIENT
  Age: 82 Year
  Sex: Female
  Weight: 77.11 kg

DRUGS (13)
  1. TYLENOL (CAPLET) [Suspect]
     Route: 048
  2. TYLENOL (CAPLET) [Suspect]
     Indication: ARTHRALGIA
     Route: 048
  3. METOPROLOL [Concomitant]
     Indication: HEART RATE IRREGULAR
     Route: 048
  4. METOPROLOL [Concomitant]
     Route: 048
  5. COZAAR [Concomitant]
     Indication: BLOOD PRESSURE ABNORMAL
     Route: 048
  6. COZAAR [Concomitant]
     Route: 048
  7. LEVOTHROID [Concomitant]
     Indication: THYROID DISORDER
     Route: 048
  8. WARFARIN [Concomitant]
     Indication: ANTICOAGULANT THERAPY
     Route: 048
  9. ARIMIDEX [Concomitant]
     Indication: NEOPLASM MALIGNANT
     Route: 048
  10. ENTERIC ASPIRIN [Concomitant]
     Indication: CEREBROVASCULAR ACCIDENT PROPHYLAXIS
     Route: 048
  11. BRIMONIDINE TARTRATE [Concomitant]
     Indication: GLAUCOMA
     Dosage: IN EACH EYE
     Route: 031
  12. PREDNISOLONE [Concomitant]
     Indication: GLAUCOMA
     Dosage: IN LEFT EYE
     Route: 031
  13. LUMIGAN [Concomitant]
     Indication: GLAUCOMA
     Dosage: IN EACH EYE
     Route: 031

REACTIONS (12)
  - ABDOMINAL PAIN UPPER [None]
  - ASTHENIA [None]
  - BLOOD PRESSURE DECREASED [None]
  - DIARRHOEA [None]
  - DIZZINESS [None]
  - HYPERSOMNIA [None]
  - MUSCULAR WEAKNESS [None]
  - NAUSEA [None]
  - PARAESTHESIA [None]
  - PRODUCT ODOUR ABNORMAL [None]
  - PRODUCT QUALITY ISSUE [None]
  - VOMITING [None]
